FAERS Safety Report 23347248 (Version 15)
Quarter: 2025Q1

REPORT INFORMATION
  Report Type: Spontaneous
  Country: US (occurrence: US)
  Receive Date: 20231228
  Receipt Date: 20250131
  Transmission Date: 20250409
  Serious: No
  Sender: PFIZER
  Company Number: US-PFIZER INC-PV202300178554

PATIENT
  Age: 68 Year
  Sex: Female

DRUGS (5)
  1. BOSULIF [Suspect]
     Active Substance: BOSUTINIB MONOHYDRATE
     Indication: Iron deficiency anaemia
     Dosage: 400 MG, 1X/DAY (TAKE 4 TABLETS, ONCE DAILY WITH FOOD)
     Route: 048
     Dates: start: 2023
  2. BOSULIF [Suspect]
     Active Substance: BOSUTINIB MONOHYDRATE
     Indication: Chronic myeloid leukaemia
     Dosage: 200 MG, 1X/DAY (WITH FOOD)
     Route: 048
     Dates: end: 20240130
  3. BOSULIF [Suspect]
     Active Substance: BOSUTINIB MONOHYDRATE
     Dosage: 200 MG, 1X/DAY (WITH FOOD)
     Route: 048
     Dates: start: 2024
  4. BOSULIF [Suspect]
     Active Substance: BOSUTINIB MONOHYDRATE
     Dosage: 100 MG, 1X/DAY (ONCE DAILY WITH FOOD)
     Route: 048
     Dates: start: 2024
  5. BOSULIF [Suspect]
     Active Substance: BOSUTINIB MONOHYDRATE
     Dosage: 200 MG, 1X/DAY (TAKE (2) TABLET(S) WITH FOOD)/ 100 MG TAKE 2 TABLETS BY MOUTH ONCE DAILY WITH FOOD
     Route: 048

REACTIONS (3)
  - Cough [Unknown]
  - Pyrexia [Unknown]
  - Product prescribing error [Unknown]
